FAERS Safety Report 12575756 (Version 1)
Quarter: 2016Q3

REPORT INFORMATION
  Report Type: Spontaneous
  Country: US (occurrence: US)
  Receive Date: 20160720
  Receipt Date: 20160720
  Transmission Date: 20161109
  Serious: Yes (Other)
  Sender: FDA-Public Use
  Company Number: US-JNJFOC-20160714754

PATIENT
  Sex: Female

DRUGS (4)
  1. IMBRUVICA [Suspect]
     Active Substance: IBRUTINIB
     Indication: CHRONIC LYMPHOCYTIC LEUKAEMIA
     Route: 048
     Dates: start: 20160219, end: 20160527
  2. WARFARIN [Concomitant]
     Active Substance: WARFARIN
     Dosage: WEEKLY
     Dates: start: 20151230, end: 20160228
  3. WARFARIN [Concomitant]
     Active Substance: WARFARIN
     Dosage: WEEKLY
     Dates: start: 20160304
  4. WARFARIN [Concomitant]
     Active Substance: WARFARIN
     Dosage: DURATION 4 DAYS, WEEKLY
     Dates: start: 20160229, end: 20160303

REACTIONS (1)
  - International normalised ratio decreased [Not Recovered/Not Resolved]

NARRATIVE: CASE EVENT DATE: 20160229
